FAERS Safety Report 8759472 (Version 3)
Quarter: 2013Q1

REPORT INFORMATION
  Report Type: Spontaneous
  Country: JP (occurrence: JP)
  Receive Date: 20120829
  Receipt Date: 20130222
  Transmission Date: 20140127
  Serious: Yes (Hospitalization, Other)
  Sender: FDA-Public Use
  Company Number: JP-MERCK-1206USA02716

PATIENT
  Age: 83 Year
  Sex: Male
  Weight: 70 kg

DRUGS (7)
  1. JANUVIA TABLETS 50MG [Suspect]
     Indication: DIABETES MELLITUS
     Dosage: 50 MG, QD
     Route: 048
     Dates: start: 20120524, end: 20120609
  2. BLOPRESS [Concomitant]
     Dosage: DAILY DOSAGE UNKNOWN
     Route: 048
  3. PREDNISOLONE [Concomitant]
     Dosage: DAILY DOSAGE UNKNOWN
  4. HALTHROW [Concomitant]
     Dosage: DAILY DOSAGE UNKNOWN
     Route: 048
  5. PURSENNID (SENNOSIDES) [Concomitant]
     Dosage: DAILY DOSE UNKNOWN
     Route: 048
  6. GASTER [Concomitant]
     Dosage: DAILY DOSE UNKNOWN
     Route: 048
  7. D-ALPHA [Concomitant]
     Dosage: DAILY DOSE UNKNOWN
     Route: 048

REACTIONS (2)
  - Stevens-Johnson syndrome [Recovering/Resolving]
  - Liver disorder [Unknown]
